FAERS Safety Report 21648712 (Version 1)
Quarter: 2022Q4

REPORT INFORMATION
  Report Type: Spontaneous
  Country: US (occurrence: None)
  Receive Date: 20221123
  Receipt Date: 20221123
  Transmission Date: 20230112
  Serious: Yes (Hospitalization)
  Sender: FDA-Public Use
  Company Number: None

PATIENT
  Sex: Male
  Weight: 61.2 kg

DRUGS (1)
  1. CISPLATIN [Suspect]
     Active Substance: CISPLATIN
     Dates: end: 20221114

REACTIONS (8)
  - General physical health deterioration [None]
  - Lethargy [None]
  - Hypophagia [None]
  - Poor personal hygiene [None]
  - Sepsis [None]
  - COVID-19 [None]
  - Febrile neutropenia [None]
  - Asthenia [None]

NARRATIVE: CASE EVENT DATE: 20221120
